FAERS Safety Report 10054878 (Version 1)
Quarter: 2014Q2

REPORT INFORMATION
  Report Type: Spontaneous
  Country: US (occurrence: BE)
  Receive Date: 20140402
  Receipt Date: 20140402
  Transmission Date: 20141212
  Serious: No
  Sender: FDA-Public Use
  Company Number: BE-FRI-1000065834

PATIENT
  Age: 28 Year
  Sex: Female

DRUGS (1)
  1. ASENAPINE [Suspect]
     Dosage: 1 DF
     Route: 060

REACTIONS (6)
  - Wheezing [Recovered/Resolved]
  - Feeling abnormal [Unknown]
  - Dysgeusia [Unknown]
  - Dizziness [Unknown]
  - Underdose [Unknown]
  - Inappropriate schedule of drug administration [Unknown]
